FAERS Safety Report 19282256 (Version 1)
Quarter: 2021Q2

REPORT INFORMATION
  Report Type: Spontaneous
  Country: US (occurrence: US)
  Receive Date: 20210520
  Receipt Date: 20210520
  Transmission Date: 20210717
  Serious: No
  Sender: FDA-Public Use
  Company Number: US-TAKEDA-2021TUS031494

PATIENT
  Sex: Female
  Weight: 96 kg

DRUGS (2)
  1. GAMMAGARD S/D [Suspect]
     Active Substance: HUMAN IMMUNOGLOBULIN G
     Indication: IMMUNODEFICIENCY COMMON VARIABLE
     Dosage: 50 GRAM, MONTHLY
     Route: 042
     Dates: start: 20200226
  2. GAMMAGARD S/D [Suspect]
     Active Substance: HUMAN IMMUNOGLOBULIN G
     Indication: IMMUNODEFICIENCY COMMON VARIABLE
     Dosage: 50 GRAM, MONTHLY
     Route: 042
     Dates: start: 20200226

REACTIONS (5)
  - Cough [Unknown]
  - Chest discomfort [Unknown]
  - Product reconstitution quality issue [Unknown]
  - Incorrect drug administration rate [Unknown]
  - Dyspnoea [Unknown]
